FAERS Safety Report 15662041 (Version 17)
Quarter: 2020Q2

REPORT INFORMATION
  Report Type: Report from Study
  Country: US (occurrence: US)
  Receive Date: 20181127
  Receipt Date: 20200626
  Transmission Date: 20200713
  Serious: Yes (Death, Hospitalization, Other)
  Sender: FDA-Public Use
  Company Number: US-ACTELION-A-NJ2017-161481

PATIENT
  Age: 53 Year
  Sex: Female
  Weight: 73.47 kg

DRUGS (12)
  1. ADEMPAS [Suspect]
     Active Substance: RIOCIGUAT
     Indication: PRODUCT USED FOR UNKNOWN INDICATION
     Route: 065
  2. OPSUMIT [Concomitant]
     Active Substance: MACITENTAN
  3. VELETRI [Suspect]
     Active Substance: EPOPROSTENOL
     Dosage: 40 NG/KG, PER MIN
     Route: 042
  4. NIFEDIPINE. [Concomitant]
     Active Substance: NIFEDIPINE
  5. VELETRI [Suspect]
     Active Substance: EPOPROSTENOL
     Dosage: 10 NG/KG, PER MIN
     Route: 042
  6. VELETRI [Suspect]
     Active Substance: EPOPROSTENOL
     Dosage: 36 NG/KG, PER MIN
     Route: 042
  7. VELETRI [Suspect]
     Active Substance: EPOPROSTENOL
     Dosage: UNK
     Route: 042
  8. ADCIRCA [Concomitant]
     Active Substance: TADALAFIL
  9. VELETRI [Suspect]
     Active Substance: EPOPROSTENOL
     Indication: PULMONARY HYPERTENSION
     Dosage: 36 NG/KG, PER MIN
     Route: 042
  10. VELETRI [Suspect]
     Active Substance: EPOPROSTENOL
     Dosage: 20 NG/KG, PER MIN
     Route: 042
  11. VELETRI [Suspect]
     Active Substance: EPOPROSTENOL
     Dosage: 28 NG/KG, PER MIN
     Route: 042
  12. VELETRI [Suspect]
     Active Substance: EPOPROSTENOL
     Dosage: 14 NG/KG, PER MIN
     Route: 042

REACTIONS (42)
  - Skin discolouration [Recovered/Resolved]
  - Device malfunction [Recovered/Resolved]
  - Heart rate increased [Unknown]
  - Infection [Unknown]
  - Nausea [Not Recovered/Not Resolved]
  - Cardiac failure [Unknown]
  - Hypoxia [Unknown]
  - Anaemia [Unknown]
  - Fluid retention [Unknown]
  - Head injury [Unknown]
  - Fatigue [Recovered/Resolved]
  - Vomiting [Unknown]
  - Swelling [Unknown]
  - Hip fracture [Unknown]
  - Pulmonary arterial hypertension [Unknown]
  - Haemoglobin decreased [Unknown]
  - Hypotension [Unknown]
  - Syncope [Unknown]
  - Fall [Unknown]
  - Headache [Not Recovered/Not Resolved]
  - Flushing [Unknown]
  - Asthenia [Recovered/Resolved]
  - Arthralgia [Unknown]
  - Dyspnoea exertional [Unknown]
  - Feeling abnormal [Recovering/Resolving]
  - Facial pain [Unknown]
  - Pain in jaw [Not Recovered/Not Resolved]
  - Pulmonary arterial pressure increased [Unknown]
  - Dizziness [Unknown]
  - Diarrhoea [Not Recovered/Not Resolved]
  - Malaise [Unknown]
  - Pain [Not Recovered/Not Resolved]
  - Death [Fatal]
  - Pelvic fracture [Unknown]
  - Epistaxis [Unknown]
  - Dyspnoea [Unknown]
  - Transfusion [Unknown]
  - Oedema peripheral [Unknown]
  - Emergency care [Unknown]
  - Hypertension [Recovering/Resolving]
  - Drug titration error [Unknown]
  - Melaena [Unknown]

NARRATIVE: CASE EVENT DATE: 201907
